FAERS Safety Report 4453998-X (Version None)
Quarter: 2004Q3

REPORT INFORMATION
  Report Type: 
  Country: None (occurrence: None)
  Receive Date: 20040902
  Receipt Date: 20040706
  Transmission Date: 20050211
  Serious: No
  Sender: FDA-Public Use
  Company Number: 200419034BWH

PATIENT
  Age: 57 Year
  Sex: Male
  Weight: 90.7194 kg

DRUGS (3)
  1. LEVITRA [Suspect]
     Indication: ERECTILE DYSFUNCTION
     Dosage: 10 MG, TOTAL DAILY, ORAL
     Route: 048
     Dates: start: 20040704
  2. MOTRIN [Concomitant]
  3. CHOLESTEROL LOWERING MEDICATION (NOS) [Concomitant]

REACTIONS (2)
  - TESTICULAR PAIN [None]
  - TESTICULAR SWELLING [None]
